FAERS Safety Report 8624840-8 (Version None)
Quarter: 2012Q3

REPORT INFORMATION
  Report Type: 
  Country: None (occurrence: None)
  Receive Date: 20120827
  Receipt Date: 20120822
  Transmission Date: 20120928
  Serious: Yes (Hospitalization, Other)
  Sender: FDA-Public Use
  Company Number: US-009507513-1202USA02443

PATIENT

DRUGS (4)
  1. CELEBREX [Concomitant]
     Indication: OSTEOARTHRITIS
     Dosage: 200 MG, QD
     Dates: start: 20030421
  2. NAPROSYN [Concomitant]
     Indication: OSTEOARTHRITIS
     Dosage: 500 MG, BID
     Dates: start: 20030502
  3. FOSAMAX [Suspect]
     Indication: OSTEOPENIA
  4. FOSAMAX [Suspect]
     Indication: OSTEOPOROSIS
     Dosage: 70 MG, UNK
     Route: 048
     Dates: start: 20030502, end: 20080915

REACTIONS (50)
  - FEMUR FRACTURE [None]
  - PANCREATIC CYST [None]
  - VARICOSE VEIN [None]
  - BILE DUCT STONE [None]
  - LIGAMENT INJURY [None]
  - SKELETAL INJURY [None]
  - OEDEMA PERIPHERAL [None]
  - METASTASIS [None]
  - LOW TURNOVER OSTEOPATHY [None]
  - FRACTURE NONUNION [None]
  - COLON ADENOMA [None]
  - HYPERTENSION [None]
  - UPPER RESPIRATORY TRACT INFECTION [None]
  - CHONDROMALACIA [None]
  - MENISCUS LESION [None]
  - INTERVERTEBRAL DISC DEGENERATION [None]
  - WHEEZING [None]
  - DEMENTIA [None]
  - GASTRITIS [None]
  - RENAL FAILURE ACUTE [None]
  - SPONDYLOLISTHESIS [None]
  - EXOSTOSIS [None]
  - ARTHRALGIA [None]
  - ERYTHEMA [None]
  - PELVIC FRACTURE [None]
  - FRACTURED ISCHIUM [None]
  - PUBIS FRACTURE [None]
  - SPINAL OSTEOARTHRITIS [None]
  - HYPOTHYROIDISM [None]
  - KYPHOSIS [None]
  - JOINT EFFUSION [None]
  - ANXIETY [None]
  - PRESYNCOPE [None]
  - FALL [None]
  - BILIARY DILATATION [None]
  - BUNDLE BRANCH BLOCK RIGHT [None]
  - ARTHROPATHY [None]
  - DEHYDRATION [None]
  - BURSITIS [None]
  - HELICOBACTER TEST POSITIVE [None]
  - SYNOVIAL CYST [None]
  - ROSACEA [None]
  - GASTROOESOPHAGEAL REFLUX DISEASE [None]
  - CONSTIPATION [None]
  - HIATUS HERNIA [None]
  - INTERVERTEBRAL DISC PROTRUSION [None]
  - SPONDYLOLYSIS [None]
  - EROSIVE OESOPHAGITIS [None]
  - HAEMORRHOIDS [None]
  - DIVERTICULUM [None]
